FAERS Safety Report 6764272-0 (Version None)
Quarter: 2010Q2

REPORT INFORMATION
  Report Type: 
  Country: None (occurrence: None)
  Receive Date: 20100610
  Receipt Date: 20100429
  Transmission Date: 20101027
  Serious: Yes (Other)
  Sender: FDA-Public Use
  Company Number: US-BAXTER-2010BH003587

PATIENT
  Age: 44 Year
  Sex: Female
  Weight: 78 kg

DRUGS (8)
  1. HEPARIN SODIUM INJECTION [Suspect]
     Indication: LEMIERRE SYNDROME
     Route: 058
     Dates: start: 20080411, end: 20080415
  2. CYMBALTA [Concomitant]
     Indication: DRUG USE FOR UNKNOWN INDICATION
     Route: 065
  3. VITAMIN D [Concomitant]
     Indication: DRUG USE FOR UNKNOWN INDICATION
     Route: 065
  4. PREDNISONE [Concomitant]
     Indication: DRUG USE FOR UNKNOWN INDICATION
     Route: 065
  5. DILAUDID [Concomitant]
     Indication: DRUG USE FOR UNKNOWN INDICATION
     Route: 065
  6. MYCELEX [Concomitant]
     Indication: DRUG USE FOR UNKNOWN INDICATION
     Route: 065
  7. ACETAMINOPHEN W/ PROPOXYPHENE HCL [Concomitant]
     Indication: PAIN
     Route: 065
  8. CLEOCIN [Concomitant]
     Indication: DRUG USE FOR UNKNOWN INDICATION
     Route: 065

REACTIONS (11)
  - ABDOMINAL PAIN UPPER [None]
  - ADDISON'S DISEASE [None]
  - ADRENAL DISORDER [None]
  - APHAGIA [None]
  - AUTOIMMUNE DISORDER [None]
  - HYPOGAMMAGLOBULINAEMIA [None]
  - HYPOTENSION [None]
  - INFECTION [None]
  - LOSS OF CONSCIOUSNESS [None]
  - PLATELET COUNT DECREASED [None]
  - WEIGHT DECREASED [None]
